FAERS Safety Report 9721479 (Version 1)
Quarter: 2013Q4

REPORT INFORMATION
  Report Type: Spontaneous
  Country: US (occurrence: US)
  Receive Date: 20131130
  Receipt Date: 20131130
  Transmission Date: 20140711
  Serious: No
  Sender: FDA-Public Use
  Company Number: US-009507513-1311USA013171

PATIENT
  Sex: Female

DRUGS (1)
  1. TEMODAR [Suspect]
     Route: 048

REACTIONS (3)
  - Accidental exposure to product [Unknown]
  - Nausea [Unknown]
  - Vomiting [Unknown]
